FAERS Safety Report 18323855 (Version 4)
Quarter: 2020Q4

REPORT INFORMATION
  Report Type: Report from Study
  Country: US (occurrence: US)
  Receive Date: 20200928
  Receipt Date: 20201109
  Transmission Date: 20210113
  Serious: Yes (Hospitalization, Other)
  Sender: FDA-Public Use
  Company Number: US-JNJFOC-20200929151

PATIENT
  Sex: Female
  Weight: 103.97 kg

DRUGS (9)
  1. MORPHINE [Concomitant]
     Active Substance: MORPHINE
  2. VELETRI [Suspect]
     Active Substance: EPOPROSTENOL
     Dosage: 15NG/KG/MIN
     Route: 042
  3. VELETRI [Suspect]
     Active Substance: EPOPROSTENOL
     Route: 042
  4. VELETRI [Suspect]
     Active Substance: EPOPROSTENOL
     Indication: PULMONARY ARTERIAL HYPERTENSION
     Dosage: 25.79 NG/KG/MIN
     Route: 042
  5. ADCIRCA [Concomitant]
     Active Substance: TADALAFIL
  6. UPTRAVI [Suspect]
     Active Substance: SELEXIPAG
     Indication: PULMONARY ARTERIAL HYPERTENSION
     Dosage: 200 MCG,BID
     Route: 048
     Dates: end: 20201008
  7. OXYCODONE [Concomitant]
     Active Substance: OXYCODONE
  8. AMLODIPINE [Concomitant]
     Active Substance: AMLODIPINE BESYLATE
  9. TORSEMIDE. [Concomitant]
     Active Substance: TORSEMIDE
     Dosage: HER TORSEMIDE WAS INCREASED

REACTIONS (25)
  - Flushing [Unknown]
  - Headache [Unknown]
  - Fluid overload [Unknown]
  - Pain in jaw [Not Recovered/Not Resolved]
  - Breath sounds abnormal [Unknown]
  - Breast cancer [Unknown]
  - Autoimmune disorder [Unknown]
  - Rash [Unknown]
  - Pain [Unknown]
  - Blindness unilateral [Unknown]
  - Dyspepsia [Unknown]
  - Infusion [Unknown]
  - Interstitial lung disease [Unknown]
  - Hypersomnia [Unknown]
  - Neck pain [Not Recovered/Not Resolved]
  - Weight increased [Unknown]
  - Hypoxia [Unknown]
  - Fibromyalgia [Unknown]
  - Urine output decreased [Unknown]
  - Carbon dioxide increased [Unknown]
  - Arthralgia [Unknown]
  - Pain in extremity [Unknown]
  - Hyperhidrosis [Unknown]
  - Somnolence [Unknown]
  - Oedema [Unknown]
